FAERS Safety Report 6608216-0 (Version None)
Quarter: 2010Q1

REPORT INFORMATION
  Report Type: 
  Country: None (occurrence: None)
  Receive Date: 20100301
  Receipt Date: 20100219
  Transmission Date: 20100710
  Serious: Yes (Other)
  Sender: FDA-Public Use
  Company Number: BR-ROCHE-680692

PATIENT
  Sex: Male

DRUGS (2)
  1. ROACUTAN [Suspect]
     Indication: ACNE
     Route: 065
     Dates: start: 20090916, end: 20100113
  2. ROACUTAN [Suspect]
     Route: 065
     Dates: start: 20100212

REACTIONS (2)
  - BLOOD TEST ABNORMAL [None]
  - TRANSAMINASES INCREASED [None]
